FAERS Safety Report 4448308-8 (Version None)
Quarter: 2004Q3

REPORT INFORMATION
  Report Type: 
  Country: None (occurrence: None)
  Receive Date: 20040910
  Receipt Date: 20040813
  Transmission Date: 20050211
  Serious: Yes (Hospitalization)
  Sender: FDA-Public Use
  Company Number: CIO04017631

PATIENT
  Age: 31 Month
  Sex: Male
  Weight: 15.9 kg

DRUGS (3)
  1. NYQUIL CHILDREN'S COLD/COUGH RELIEF, CHERRY FLAVOR (SEE IMAGE) [Suspect]
     Indication: COUGH
     Dosage: 7.5 ML, 2/DAY FOR 2 DAYS, ORAL
     Route: 048
     Dates: start: 20040428, end: 20040430
  2. TYLENOL CHILDRENS [Concomitant]
  3. CHILDREN'S MOTRIN [Concomitant]

REACTIONS (3)
  - HYPERSENSITIVITY [None]
  - MEDICATION ERROR [None]
  - STEVENS-JOHNSON SYNDROME [None]
